FAERS Safety Report 14367357 (Version 1)
Quarter: 2018Q1

REPORT INFORMATION
  Report Type: Spontaneous
  Country: TR (occurrence: TR)
  Receive Date: 20180109
  Receipt Date: 20180109
  Transmission Date: 20180509
  Serious: Yes (Disabling, Other)
  Sender: FDA-Public Use
  Company Number: TR-PFIZER INC-2017515564

PATIENT
  Age: 30 Year
  Sex: Female

DRUGS (4)
  1. ANAFRANIL [Concomitant]
     Active Substance: CLOMIPRAMINE HYDROCHLORIDE
     Indication: OBSESSIVE-COMPULSIVE DISORDER
     Dosage: 25 MG, UNK
  2. CHAMPIX [Suspect]
     Active Substance: VARENICLINE TARTRATE
     Dosage: 0.25 MG, 2X/DAY
     Dates: start: 20171125, end: 20171128
  3. ANAFRANIL [Concomitant]
     Active Substance: CLOMIPRAMINE HYDROCHLORIDE
     Dosage: 75 MG, UNK
  4. CHAMPIX [Suspect]
     Active Substance: VARENICLINE TARTRATE
     Indication: SMOKING CESSATION THERAPY
     Dosage: 0.25 MG, DAILY
     Dates: start: 20171122, end: 20171124

REACTIONS (10)
  - Wrong technique in product usage process [Unknown]
  - Fatigue [Recovered/Resolved]
  - Hypoaesthesia [Recovered/Resolved]
  - Paralysis [Recovered/Resolved]
  - Nausea [Recovered/Resolved]
  - Speech disorder [Recovered/Resolved]
  - Hypoaesthesia oral [Recovered/Resolved]
  - Asthenia [Recovered/Resolved]
  - Somnolence [Recovered/Resolved]
  - Underdose [Unknown]

NARRATIVE: CASE EVENT DATE: 20171122
